FAERS Safety Report 21305482 (Version 2)
Quarter: 2022Q3

REPORT INFORMATION
  Report Type: Spontaneous
  Country: CN (occurrence: None)
  Receive Date: 20220908
  Receipt Date: 20220923
  Transmission Date: 20221027
  Serious: Yes (Other)
  Sender: FDA-Public Use
  Company Number: 2022A307348

PATIENT
  Age: 79 Year
  Sex: Female

DRUGS (1)
  1. LYNPARZA [Suspect]
     Active Substance: OLAPARIB
     Route: 048

REACTIONS (5)
  - Laboratory test abnormal [Unknown]
  - Coronary artery disease [Unknown]
  - Cardiac disorder [Unknown]
  - Anaemia [Unknown]
  - Drug ineffective [Unknown]
